FAERS Safety Report 5350504-2 (Version None)
Quarter: 2007Q2

REPORT INFORMATION
  Report Type: 
  Country: None (occurrence: None)
  Receive Date: 20070605
  Receipt Date: 20070605
  Transmission Date: 20071010
  Serious: Yes (Hospitalization)
  Sender: FDA-Public Use
  Company Number: None

PATIENT
  Sex: Male
  Weight: 71 kg

DRUGS (1)
  1. CISPLATIN [Suspect]
     Dosage: 278.5 MG
     Dates: end: 20070110

REACTIONS (12)
  - ATELECTASIS [None]
  - BLOOD PRESSURE ORTHOSTATIC ABNORMAL [None]
  - DEHYDRATION [None]
  - DYSPHAGIA [None]
  - LEUKOPENIA [None]
  - LYMPHOPENIA [None]
  - MUCOSAL INFLAMMATION [None]
  - NEUTROPENIA [None]
  - ODYNOPHAGIA [None]
  - ORAL INTAKE REDUCED [None]
  - PNEUMONIA [None]
  - TREATMENT NONCOMPLIANCE [None]
